FAERS Safety Report 16152695 (Version 1)
Quarter: 2019Q2

REPORT INFORMATION
  Report Type: Spontaneous
  Country: CA (occurrence: CA)
  Receive Date: 20190403
  Receipt Date: 20190403
  Transmission Date: 20190711
  Serious: Yes (Other)
  Sender: FDA-Public Use
  Company Number: CA-PFIZER INC-2019133635

PATIENT
  Age: 64 Year
  Sex: Male

DRUGS (3)
  1. PLAVIX [Suspect]
     Active Substance: CLOPIDOGREL BISULFATE
     Dosage: UNK
  2. CISPLATIN. [Suspect]
     Active Substance: CISPLATIN
     Dosage: UNK
  3. GEMCITABINE HYDROCHLORIDE. [Suspect]
     Active Substance: GEMCITABINE HYDROCHLORIDE
     Dosage: UNK

REACTIONS (12)
  - Brain injury [Unknown]
  - Blood calcium abnormal [Unknown]
  - Aneurysm [Unknown]
  - Vision blurred [Recovered/Resolved]
  - Pyrexia [Unknown]
  - Blood magnesium abnormal [Unknown]
  - Cerebrovascular accident [Unknown]
  - Dysarthria [Unknown]
  - Anaemia [Unknown]
  - Vitamin D abnormal [Unknown]
  - Peripheral vascular disorder [Unknown]
  - Thinking abnormal [Unknown]

NARRATIVE: CASE EVENT DATE: 20190129
